FAERS Safety Report 8098566-6 (Version None)
Quarter: 2012Q1

REPORT INFORMATION
  Report Type: 
  Country: None (occurrence: None)
  Receive Date: 20120129
  Receipt Date: 20110913
  Transmission Date: 20120608
  Serious: No
  Sender: FDA-Public Use
  Company Number: US-ABBOTT-11P-163-0854880-00

PATIENT
  Sex: Female

DRUGS (4)
  1. PREDNISONE TAB [Concomitant]
     Indication: PRODUCT USED FOR UNKNOWN INDICATION
  2. ASACOL [Concomitant]
     Indication: GASTROINTESTINAL DISORDER
     Dosage: HD
     Route: 048
  3. HUMIRA [Suspect]
     Dosage: DAY 15
     Dates: start: 20110829
  4. HUMIRA [Suspect]
     Indication: CROHN'S DISEASE
     Dosage: DAY 1
     Route: 058
     Dates: start: 20110829

REACTIONS (4)
  - TREMOR [None]
  - FATIGUE [None]
  - CHROMATURIA [None]
  - INCOHERENT [None]
